FAERS Safety Report 15665152 (Version 1)
Quarter: 2018Q4

REPORT INFORMATION
  Report Type: Report from Study
  Country: DO (occurrence: DO)
  Receive Date: 20181128
  Receipt Date: 20181128
  Transmission Date: 20190205
  Serious: Yes (Hospitalization, Other)
  Sender: FDA-Public Use
  Company Number: DO-SA-2017SA176121

PATIENT
  Age: 32 Year
  Sex: Female
  Weight: 58.05 kg

DRUGS (1)
  1. ALEMTUZUMAB [Suspect]
     Active Substance: ALEMTUZUMAB
     Indication: MULTIPLE SCLEROSIS
     Dosage: 12 MG,QD
     Route: 041
     Dates: start: 20170814, end: 20170818

REACTIONS (10)
  - Headache [Recovered/Resolved]
  - Menstruation irregular [Recovered/Resolved]
  - Pneumonia [Recovering/Resolving]
  - Balance disorder [Recovered/Resolved]
  - Depression [Recovering/Resolving]
  - Hypersensitivity [Recovering/Resolving]
  - Dysmenorrhoea [Recovered/Resolved]
  - Erythema [Recovering/Resolving]
  - Herpes virus infection [Recovering/Resolving]
  - Alopecia [Recovered/Resolved]

NARRATIVE: CASE EVENT DATE: 20170911
